FAERS Safety Report 7767326-5 (Version None)
Quarter: 2011Q3

REPORT INFORMATION
  Report Type: 
  Country: None (occurrence: None)
  Receive Date: 20110922
  Receipt Date: 20110119
  Transmission Date: 20111222
  Serious: No
  Sender: FDA-Public Use
  Company Number: US-ASTRAZENECA-2011SE03033

PATIENT
  Age: 34 Year
  Sex: Female
  Weight: 57 kg

DRUGS (4)
  1. ATIVAN [Concomitant]
  2. CELEXA [Concomitant]
  3. TRAZACINE [Concomitant]
  4. SEROQUEL [Suspect]
     Indication: BIPOLAR DISORDER
     Route: 048
     Dates: start: 20090101, end: 20110117

REACTIONS (12)
  - CONFUSIONAL STATE [None]
  - NAUSEA [None]
  - ERUCTATION [None]
  - DIARRHOEA [None]
  - INSOMNIA [None]
  - MALAISE [None]
  - IRRITABILITY [None]
  - DRUG WITHDRAWAL SYNDROME [None]
  - DIZZINESS [None]
  - DYSPEPSIA [None]
  - DEPRESSION [None]
  - DRUG DOSE OMISSION [None]
